FAERS Safety Report 18514658 (Version 1)
Quarter: 2020Q4

REPORT INFORMATION
  Report Type: Other
  Country: GB (occurrence: GB)
  Receive Date: 20201117
  Receipt Date: 20201117
  Transmission Date: 20210114
  Serious: No
  Sender: FDA-Public Use
  Company Number: GB-LUPIN PHARMACEUTICALS INC.-2020-06727

PATIENT
  Age: 39 Year
  Sex: Female
  Weight: 102 kg

DRUGS (1)
  1. SERTRALINE HYDROCHLORIDE TABLETS [Suspect]
     Active Substance: SERTRALINE HYDROCHLORIDE
     Indication: PRODUCT USED FOR UNKNOWN INDICATION
     Dosage: 50 MILLIGRAM, QD (CUMULATIVE DOSE WAS 350 MG)
     Route: 065
     Dates: start: 20200902

REACTIONS (5)
  - Vomiting [Recovered/Resolved]
  - Nausea [Recovered/Resolved]
  - Feeling cold [Unknown]
  - Mydriasis [Unknown]
  - Cold sweat [Unknown]

NARRATIVE: CASE EVENT DATE: 2020
